FAERS Safety Report 6896404-8 (Version None)
Quarter: 2010Q3

REPORT INFORMATION
  Report Type: 
  Country: None (occurrence: None)
  Receive Date: 20100727
  Receipt Date: 20100723
  Transmission Date: 20110219
  Serious: Yes (Other)
  Sender: FDA-Public Use
  Company Number: IT-MERCK-1006ITA00011

PATIENT
  Age: 87 Year
  Sex: Female

DRUGS (7)
  1. PRIMAXIN [Suspect]
     Indication: SEPSIS
     Route: 051
     Dates: start: 20100529, end: 20100530
  2. METRONIDAZOLE [Suspect]
     Indication: CLOSTRIDIAL INFECTION
     Route: 048
     Dates: start: 20100528, end: 20100528
  3. METRONIDAZOLE [Suspect]
     Route: 048
     Dates: start: 20100529, end: 20100530
  4. ESOMEPRAZOLE MAGNESIUM [Concomitant]
     Route: 048
     Dates: start: 20100528, end: 20100530
  5. FUROSEMIDE SODIUM [Concomitant]
     Route: 051
     Dates: start: 20100530, end: 20100530
  6. ALLOPURINOL [Concomitant]
     Route: 048
  7. ACETYLCYSTEINE [Concomitant]
     Route: 065

REACTIONS (1)
  - ACQUIRED MACROGLOSSIA [None]
